FAERS Safety Report 6733565-5 (Version None)
Quarter: 2010Q2

REPORT INFORMATION
  Report Type: 
  Country: None (occurrence: None)
  Receive Date: 20100512
  Receipt Date: 20100512
  Transmission Date: 20101027
  Serious: Yes (Other)
  Sender: FDA-Public Use
  Company Number: None

PATIENT
  Sex: Male
  Weight: 58.9676 kg

DRUGS (3)
  1. XIFAXAN [Suspect]
     Indication: INFECTION
     Dosage: 200MG
     Dates: start: 20080101
  2. XIFAXAN [Suspect]
     Indication: LIVER DISORDER
     Dosage: 200MG
     Dates: start: 20080101
  3. XIFAXAN [Suspect]
     Indication: RENAL DISORDER
     Dosage: 200MG
     Dates: start: 20080101

REACTIONS (2)
  - HEPATIC FAILURE [None]
  - RENAL FAILURE [None]
